FAERS Safety Report 5097371-2 (Version None)
Quarter: 2006Q3

REPORT INFORMATION
  Report Type: 
  Country: None (occurrence: None)
  Receive Date: 20060901
  Receipt Date: 20060817
  Transmission Date: 20061208
  Serious: Yes (Death)
  Sender: FDA-Public Use
  Company Number: 2006S1007010

PATIENT
  Age: 42 Year
  Sex: Male
  Weight: 72.5755 kg

DRUGS (7)
  1. CLOZAPINE [Suspect]
     Indication: SCHIZOPHRENIA, PARANOID TYPE
     Dosage: 150 + 100 + 500 MG/QAM; PO - SEE IMAGE
     Route: 048
     Dates: start: 20000101, end: 20060501
  2. CLOZAPINE [Suspect]
     Indication: SCHIZOPHRENIA, PARANOID TYPE
     Dosage: 150 + 100 + 500 MG/QAM; PO - SEE IMAGE
     Route: 048
     Dates: start: 20000101, end: 20060501
  3. CLOZAPINE [Suspect]
     Indication: SCHIZOPHRENIA, PARANOID TYPE
     Dosage: 150 + 100 + 500 MG/QAM; PO - SEE IMAGE
     Route: 048
     Dates: start: 20000101, end: 20060501
  4. VENLAFAXINE (CON.) [Concomitant]
  5. LISINOPRIL (CON.) [Concomitant]
  6. ARIPIPRAZOLE (CON.) [Concomitant]
  7. SERTRALINE (CON.) [Concomitant]

REACTIONS (1)
  - DEATH [None]
